FAERS Safety Report 11349706 (Version 1)
Quarter: 2015Q3

REPORT INFORMATION
  Report Type: Spontaneous
  Country: US (occurrence: None)
  Receive Date: 20150709
  Receipt Date: 20150709
  Transmission Date: 20151125
  Serious: Yes (Other)
  Sender: FDA-Public Use
  Company Number: 2014-11801

PATIENT
  Age: 42 Year
  Sex: Female

DRUGS (2)
  1. ESTRACE [Suspect]
     Active Substance: ESTRADIOL
     Indication: PREGNANCY
     Route: 048
     Dates: start: 20140304, end: 20140514
  2. CRINONE [Suspect]
     Active Substance: PROGESTERONE
     Indication: PREGNANCY
     Dosage: ONE APPLICATION BID, VAGINAL
     Route: 067
     Dates: start: 20140519, end: 20140520

REACTIONS (2)
  - Abortion spontaneous [None]
  - Vaginal discharge [None]

NARRATIVE: CASE EVENT DATE: 20140505
